FAERS Safety Report 14904243 (Version 1)
Quarter: 2018Q2

REPORT INFORMATION
  Report Type: Spontaneous
  Country: US (occurrence: US)
  Receive Date: 20180516
  Receipt Date: 20180516
  Transmission Date: 20180711
  Serious: No
  Sender: FDA-Public Use
  Company Number: US-CELGENEUS-USA-20180503299

PATIENT
  Age: 8 Decade
  Sex: Male

DRUGS (2)
  1. ROMIDEPSIN. [Suspect]
     Active Substance: ROMIDEPSIN
     Indication: MYCOSIS FUNGOIDES
     Route: 041
  2. ROMIDEPSIN. [Suspect]
     Active Substance: ROMIDEPSIN
     Indication: B-CELL LYMPHOMA

REACTIONS (3)
  - Nausea [Unknown]
  - Hypertriglyceridaemia [Unknown]
  - Mycosis fungoides recurrent [Unknown]
